FAERS Safety Report 23567050 (Version 2)
Quarter: 2025Q1

REPORT INFORMATION
  Report Type: Spontaneous
  Country: US (occurrence: US)
  Receive Date: 20240226
  Receipt Date: 20250214
  Transmission Date: 20250409
  Serious: No
  Sender: AMNEAL
  Company Number: US-AMNEAL PHARMACEUTICALS-2023-AMRX-04293

PATIENT
  Age: 79 Year
  Sex: Male

DRUGS (6)
  1. RYTARY [Suspect]
     Active Substance: CARBIDOPA\LEVODOPA
     Indication: Product used for unknown indication
     Dosage: 48.75/195 MILLIGRAM, 1 CAPSULES, 3 /DAY
     Route: 048
  2. RYTARY [Suspect]
     Active Substance: CARBIDOPA\LEVODOPA
     Dosage: 48.75/195 MILLIGRAM, 2 CAPSULES, 3 /DAY
     Route: 048
  3. RYTARY [Suspect]
     Active Substance: CARBIDOPA\LEVODOPA
     Dosage: 48.75/195 MILLIGRAM, TAKE 2 CAPSULES IN THE MORNING, 2 CAPSULES AT NOON, 2 CAPSULES IN THE EVENING,
     Route: 048
     Dates: start: 20221129
  4. RYTARY [Suspect]
     Active Substance: CARBIDOPA\LEVODOPA
     Dosage: 48.75/195 MILLIGRAM, 3 CAPSULES, 4 /DAY
     Route: 048
     Dates: start: 20230221
  5. RYTARY [Suspect]
     Active Substance: CARBIDOPA\LEVODOPA
     Dosage: 48.75/195 MILLIGRAM, TAKE 4 CAPSULES BY MOUTH IN THE MORNING AND 4 CAPSULES AT NOON AND 4 CAPSULES I
     Route: 048
     Dates: start: 20231004
  6. RYTARY [Suspect]
     Active Substance: CARBIDOPA\LEVODOPA
     Dosage: 48.75/195 MILLIGRAM, 4 CAPSULES, 4 /DAY
     Route: 048
     Dates: start: 20231122

REACTIONS (2)
  - Movement disorder [Unknown]
  - Product dose omission in error [Unknown]

NARRATIVE: CASE EVENT DATE: 20231205
